FAERS Safety Report 24647371 (Version 1)
Quarter: 2024Q4

REPORT INFORMATION
  Report Type: Spontaneous
  Country: US (occurrence: None)
  Receive Date: 20241121
  Receipt Date: 20241121
  Transmission Date: 20250115
  Serious: Yes (Life-Threatening, Hospitalization, Disabling, Other)
  Sender: Public
  Company Number: None

PATIENT
  Age: 80 Year
  Sex: Male
  Weight: 65.25 kg

DRUGS (6)
  1. ELIGARD [Suspect]
     Active Substance: LEUPROLIDE ACETATE
     Indication: Prostate cancer
     Dosage: OTHER FREQUENCY : EVERY 3 MONTHS;?OTHER ROUTE : SUBCUTANEOUS INJECTION EVERY 3 MONTHS;?
     Route: 050
     Dates: start: 20240708, end: 20241121
  2. OLMESARTAN [Concomitant]
     Active Substance: OLMESARTAN
  3. ATORVASTATIN [Concomitant]
     Active Substance: ATORVASTATIN
  4. ZENPEP [Concomitant]
     Active Substance: PANCRELIPASE AMYLASE\PANCRELIPASE LIPASE\PANCRELIPASE PROTEASE
  5. VITAMINS [Concomitant]
     Active Substance: VITAMINS
  6. VITAMIN D [Concomitant]
     Active Substance: VITAMIN D NOS

REACTIONS (15)
  - Dizziness [None]
  - Syncope [None]
  - Circulatory collapse [None]
  - Loss of consciousness [None]
  - Blood pressure decreased [None]
  - Heart rate decreased [None]
  - Atrioventricular block complete [None]
  - Blood glucose increased [None]
  - Hepatic enzyme increased [None]
  - Glycosylated haemoglobin increased [None]
  - Type 2 diabetes mellitus [None]
  - Product communication issue [None]
  - Drug monitoring procedure not performed [None]
  - Near death experience [None]
  - Quality of life decreased [None]

NARRATIVE: CASE EVENT DATE: 20241031
